FAERS Safety Report 7762234-8 (Version None)
Quarter: 2011Q3

REPORT INFORMATION
  Report Type: 
  Country: None (occurrence: None)
  Receive Date: 20110920
  Receipt Date: 20110916
  Transmission Date: 20111222
  Serious: No
  Sender: FDA-Public Use
  Company Number: US-PFIZER INC-2011199393

PATIENT
  Sex: Male
  Weight: 95.238 kg

DRUGS (3)
  1. METOPROLOL [Concomitant]
     Dosage: UNK
  2. CHANTIX [Suspect]
     Indication: SMOKING CESSATION THERAPY
     Dosage: 0.5 MG, 1X/DAY
     Route: 048
     Dates: start: 20100916, end: 20110713
  3. VERAPAMIL [Concomitant]
     Dosage: UNK

REACTIONS (6)
  - HYPERCHLORHYDRIA [None]
  - DYSPEPSIA [None]
  - MALAISE [None]
  - NIGHTMARE [None]
  - ABNORMAL DREAMS [None]
  - NAUSEA [None]
